FAERS Safety Report 9056385 (Version 2)
Quarter: 2013Q2

REPORT INFORMATION
  Report Type: Spontaneous
  Country: DE (occurrence: DE)
  Receive Date: 20130204
  Receipt Date: 20130404
  Transmission Date: 20140414
  Serious: Yes (Other)
  Sender: FDA-Public Use
  Company Number: PHHY2013DE008535

PATIENT
  Sex: Male

DRUGS (4)
  1. RITALIN LA [Suspect]
     Dosage: 20 MG, DAILY
     Route: 048
  2. RITALIN LA [Suspect]
     Dosage: 30 MG, DAILY
     Route: 048
  3. RITALIN [Suspect]
     Dosage: 20 MG, DAILY
     Route: 048
  4. MEDIKINET [Suspect]
     Dosage: 5 MG, DAILY
     Route: 048

REACTIONS (3)
  - Convulsion [Unknown]
  - Disturbance in attention [Unknown]
  - Drug ineffective [Unknown]
